FAERS Safety Report 16370018 (Version 1)
Quarter: 2019Q2

REPORT INFORMATION
  Report Type: Spontaneous
  Country: US (occurrence: US)
  Receive Date: 20190530
  Receipt Date: 20190530
  Transmission Date: 20190711
  Serious: No
  Sender: FDA-Public Use
  Company Number: US-VIVIMED-2018SP009231

PATIENT
  Age: 51 Year
  Sex: Male

DRUGS (2)
  1. ZOLPIDEM [Suspect]
     Active Substance: ZOLPIDEM\ZOLPIDEM TARTRATE
     Indication: HYPOXIC-ISCHAEMIC ENCEPHALOPATHY
     Dosage: 5 MG, UNKNOWN
     Route: 065
     Dates: start: 2014
  2. ZOLPIDEM [Suspect]
     Active Substance: ZOLPIDEM\ZOLPIDEM TARTRATE
     Dosage: 10 MG, TID
     Route: 065

REACTIONS (1)
  - Off label use [Unknown]
